FAERS Safety Report 20061687 (Version 1)
Quarter: 2021Q4

REPORT INFORMATION
  Report Type: Spontaneous
  Country: US (occurrence: US)
  Receive Date: 20211112
  Receipt Date: 20211112
  Transmission Date: 20220303
  Serious: No
  Sender: FDA-Public Use
  Company Number: US-BAUSCH-BL-2021-036594

PATIENT
  Sex: Female

DRUGS (1)
  1. LATANOPROST [Suspect]
     Active Substance: LATANOPROST
     Indication: Glaucoma
     Dosage: ONE DROP IN LEFT EYE, EVERYDAY.
     Route: 047

REACTIONS (4)
  - Hair growth abnormal [Unknown]
  - Hair colour changes [Unknown]
  - Stress [Unknown]
  - Acne [Unknown]
